FAERS Safety Report 24687123 (Version 1)
Quarter: 2024Q4

REPORT INFORMATION
  Report Type: Spontaneous
  Country: SE (occurrence: SE)
  Receive Date: 20241202
  Receipt Date: 20241202
  Transmission Date: 20250114
  Serious: Yes (Hospitalization)
  Sender: FRESENIUS KABI
  Company Number: None

PATIENT
  Age: 54 Year
  Sex: Male

DRUGS (17)
  1. PIPERACILLIN AND TAZOBACTAM [Suspect]
     Active Substance: PIPERACILLIN SODIUM\TAZOBACTAM SODIUM
     Indication: Sepsis
     Dosage: 1 DOSE 2 TIMES DAILY?DOSAGE FORM: POWDER FOR SOLUTION FOR INFUSION?ROA: 1 DOSE 2 TIMES DAILY
     Dates: start: 20241023, end: 20241101
  2. PIPERACILLIN AND TAZOBACTAM [Suspect]
     Active Substance: PIPERACILLIN SODIUM\TAZOBACTAM SODIUM
     Indication: Pathogen resistance
  3. PIPERACILLIN AND TAZOBACTAM [Suspect]
     Active Substance: PIPERACILLIN SODIUM\TAZOBACTAM SODIUM
     Indication: Escherichia infection
  4. AMLODIPINE [Concomitant]
     Active Substance: AMLODIPINE BESYLATE
     Indication: Product used for unknown indication
     Dosage: 1 TABLET ONCE A DAY ?DOSAGE FORM: TABLET?ROA: ORAL
     Dates: start: 20240926
  5. Prednisolone Pfizer [Concomitant]
     Indication: Product used for unknown indication
     Dosage: 1,5 TABLETT DAGLIGEN. UNDER NEDTRAPPNING.?DOSAGE FORM: TABLET?ROA: ORAL
     Dates: start: 20241022
  6. COLESEVELAM HYDROCHLORIDE [Concomitant]
     Active Substance: COLESEVELAM HYDROCHLORIDE
     Indication: Product used for unknown indication
     Dosage: 1 TABLET 3 TIMES A DAY?DOSAGE FORM: FILM COATED TABLET?ROA: ORAL
     Dates: start: 20241007
  7. ARANESP [Concomitant]
     Active Substance: DARBEPOETIN ALFA
     Indication: Product used for unknown indication
     Dosage: 1 DOSE/WEEK?ROA: SUBCUTANEOUS ?DOSAGE FORM: SOLUTION FOR INJECTION IN PRE-FILLED SYRINGE
     Dates: start: 20241023
  8. DOXAZOSIN [Concomitant]
     Active Substance: DOXAZOSIN\DOXAZOSIN MESYLATE
     Indication: Product used for unknown indication
     Dosage: 2 TABLETS DAILY?DOSAGE FORM: PROLONGED-RELEASE TABLET
     Dates: start: 20240902
  9. Lantus (SoloStar) [Concomitant]
     Indication: Product used for unknown indication
     Dosage: 8 TO 36E DAILY.?DOSAGE FORM: SOLUTION FOR INJECTION IN PRE FILLED PEN?ROA: SUBCUTANEOUS
     Dates: start: 20150101
  10. INNOHEP [Concomitant]
     Active Substance: TINZAPARIN SODIUM
     Indication: Product used for unknown indication
     Dosage: 1 DOSE IN CASE OF DIALYSIS, (3 TIMES/YEAR)?DOSAGE FORM: SOLUTION FOR INJECTION IN PRE FILLED PEN?ROA
     Dates: start: 20241021
  11. METOPROLOL [Concomitant]
     Active Substance: METOPROLOL
     Indication: Product used for unknown indication
     Dosage: 1 TABLET DAILY?ROA: ORAL?DOSAGE FORM: PROLONGED-RELEASE TABLET
     Dates: start: 20240926
  12. OMEPRAZOLE [Concomitant]
     Active Substance: OMEPRAZOLE
     Indication: Product used for unknown indication
     Dosage: 1 CAPSULE 2 TIMES DAILY?ROA: ORAL?DOSAGE FORM: GASTRO-RESISTANT CAPSULE, HARD
     Dates: start: 20240913
  13. ACETAMINOPHEN [Concomitant]
     Active Substance: ACETAMINOPHEN
     Indication: Product used for unknown indication
     Dosage: 2 PIECES IF NEEDED?DOSAGE FORM: FILM COATED TABLET
  14. PRUCALOPRIDE SUCCINATE [Concomitant]
     Active Substance: PRUCALOPRIDE SUCCINATE
     Indication: Product used for unknown indication
     Dosage: 1 TABLET DAILY?DOSAGE FORM: FILM COATED TABLET?ROA: ORAL
     Dates: start: 20241007
  15. CALCIUM CARBONATE\CHOLECALCIFEROL [Concomitant]
     Active Substance: CALCIUM CARBONATE\CHOLECALCIFEROL
     Indication: Product used for unknown indication
     Dosage: 1 DOSE 2 TIMES DAILY?DOSAGE FORM: FILM COATED TABLET
     Dates: start: 20240917
  16. Furix [Concomitant]
     Indication: Product used for unknown indication
     Dosage: 4 TABLETS DAILY?DOSAGE FORM: TABLET?ROA: ORAL
     Dates: start: 20240926
  17. IMOVANE [Concomitant]
     Active Substance: ZOPICLONE
     Indication: Product used for unknown indication
     Dosage: 1 TABLET AT NIGHT?DOSAGE FORM:TABLET
     Dates: start: 20241021, end: 20241104

REACTIONS (5)
  - Liver injury [Recovering/Resolving]
  - Blood alkaline phosphatase increased [Recovering/Resolving]
  - Aspartate aminotransferase increased [Recovering/Resolving]
  - Alanine aminotransferase increased [Recovering/Resolving]
  - Gamma-glutamyltransferase increased [Recovering/Resolving]

NARRATIVE: CASE EVENT DATE: 20241029
